FAERS Safety Report 8276553-2 (Version None)
Quarter: 2012Q2

REPORT INFORMATION
  Report Type: 
  Country: None (occurrence: None)
  Receive Date: 20120412
  Receipt Date: 20120404
  Transmission Date: 20120825
  Serious: Yes (Death)
  Sender: FDA-Public Use
  Company Number: JP-GENZYME-CERZ-1002455

PATIENT
  Sex: Male
  Weight: 13.4 kg

DRUGS (1)
  1. CEREZYME [Suspect]
     Indication: GAUCHER'S DISEASE
     Dosage: 800 U, UNK
     Route: 042
     Dates: start: 20080311, end: 20120316

REACTIONS (2)
  - BACTERAEMIA [None]
  - CARDIAC FAILURE [None]
